FAERS Safety Report 6315513-5 (Version None)
Quarter: 2009Q3

REPORT INFORMATION
  Report Type: 
  Country: None (occurrence: None)
  Receive Date: 20090819
  Receipt Date: 20090813
  Transmission Date: 20100115
  Serious: Yes (Hospitalization)
  Sender: FDA-Public Use
  Company Number: US-AMGEN-US360070

PATIENT
  Sex: Male
  Weight: 62 kg

DRUGS (10)
  1. NPLATE [Suspect]
     Indication: IDIOPATHIC THROMBOCYTOPENIC PURPURA
     Route: 065
     Dates: start: 20090710
  2. ZOCOR [Concomitant]
     Route: 065
  3. OMEPRAZOLE [Concomitant]
     Route: 065
  4. NYSTATIN [Concomitant]
     Route: 065
  5. METOPROLOL [Concomitant]
     Route: 065
  6. MEGACE [Concomitant]
     Route: 065
  7. IMDUR [Concomitant]
     Route: 065
  8. AMLODIPINE [Concomitant]
     Route: 065
  9. XANAX [Concomitant]
     Route: 065
  10. ROCALTROL [Concomitant]
     Route: 065

REACTIONS (1)
  - RHABDOMYOLYSIS [None]
